FAERS Safety Report 6158987-5 (Version None)
Quarter: 2009Q2

REPORT INFORMATION
  Report Type: 
  Country: None (occurrence: None)
  Receive Date: 20090417
  Receipt Date: 20090406
  Transmission Date: 20091009
  Serious: Yes (Hospitalization)
  Sender: FDA-Public Use
  Company Number: JP-PFIZER INC-2009195676

PATIENT

DRUGS (11)
  1. EXEMESTANE [Suspect]
     Dosage: UNK
     Dates: start: 20071019
  2. BERIZYM [Concomitant]
     Indication: PANCREATITIS CHRONIC
     Dosage: UNK
     Route: 048
  3. FOIPAN [Concomitant]
     Indication: PANCREATITIS CHRONIC
     Dosage: UNK
     Route: 048
  4. AMLODIN [Concomitant]
     Indication: HYPERTENSION
     Dosage: UNK
     Route: 048
  5. LOXONIN [Concomitant]
     Indication: BACK PAIN
     Dosage: UNK
     Route: 048
  6. GASTER OD [Concomitant]
     Dosage: UNK
     Route: 048
  7. KOLANTYL [Concomitant]
     Indication: PANCREATITIS CHRONIC
     Dosage: UNK
     Route: 048
  8. ENSURE [Concomitant]
     Dosage: UNK
     Route: 048
  9. MILTAX [Concomitant]
     Indication: BACK PAIN
     Dosage: UNK
  10. SANCOBA [Concomitant]
     Indication: CATARACT
     Dosage: UNK
  11. PURSENNID [Concomitant]
     Dosage: UNK
     Route: 048

REACTIONS (1)
  - CELLULITIS [None]
